FAERS Safety Report 4897612-8 (Version None)
Quarter: 2006Q1

REPORT INFORMATION
  Report Type: 
  Country: None (occurrence: None)
  Receive Date: 20060201
  Receipt Date: 20060124
  Transmission Date: 20060701
  Serious: Yes (Other)
  Sender: FDA-Public Use
  Company Number: US-JNJFOC-20060104983

PATIENT
  Age: 56 Year
  Sex: Female
  Weight: 45.36 kg

DRUGS (7)
  1. FENTANYL [Suspect]
     Indication: MYASTHENIA GRAVIS
     Route: 062
  2. KLONOPIN [Concomitant]
  3. LORAZEPAM [Concomitant]
  4. MS CONTIN [Concomitant]
  5. OXYCODONE [Concomitant]
  6. PERCOCET [Concomitant]
  7. PERCOCET [Concomitant]

REACTIONS (5)
  - DIARRHOEA [None]
  - EPISTAXIS [None]
  - SUICIDAL IDEATION [None]
  - TEARFULNESS [None]
  - TREMOR [None]
